FAERS Safety Report 18974284 (Version 1)
Quarter: 2021Q1

REPORT INFORMATION
  Report Type: Spontaneous
  Country: CN (occurrence: CN)
  Receive Date: 20210305
  Receipt Date: 20210305
  Transmission Date: 20210420
  Serious: Yes (Other)
  Sender: FDA-Public Use
  Company Number: CN-PFIZER INC-2021206607

PATIENT
  Age: 4 Week
  Sex: Female

DRUGS (1)
  1. TAZOCIN [Suspect]
     Active Substance: PIPERACILLIN SODIUM\TAZOBACTAM SODIUM
     Indication: SEPSIS NEONATAL
     Dosage: 0.45 G, 3X/DAY
     Route: 041
     Dates: start: 20210205, end: 20210218

REACTIONS (1)
  - Thrombocytosis [Unknown]

NARRATIVE: CASE EVENT DATE: 20210206
